FAERS Safety Report 9263647 (Version 1)
Quarter: 2013Q2

REPORT INFORMATION
  Report Type: Spontaneous
  Country: US (occurrence: US)
  Receive Date: 20130430
  Receipt Date: 20130430
  Transmission Date: 20140414
  Serious: No
  Sender: FDA-Public Use
  Company Number: US-COVIDIEN/TYCO HEALTHCARE/MALLINCKRODT-T201204343

PATIENT
  Age: 11 Year
  Sex: Male

DRUGS (4)
  1. METHYLIN EXTENDED-RELEASE [Suspect]
     Indication: ATTENTION DEFICIT/HYPERACTIVITY DISORDER
     Dosage: 30 MG, DAILY
     Dates: start: 20121203
  2. METHYLIN EXTENDED-RELEASE [Suspect]
     Dosage: 20 MG DAILY
     Dates: start: 201211, end: 201212
  3. METHYLIN EXTENDED-RELEASE [Suspect]
     Dosage: 30 MG DAILY
     Dates: start: 201209, end: 201211
  4. METHYLIN EXTENDED-RELEASE [Suspect]
     Dosage: 20 MG DAILY
     Dates: start: 2008, end: 201209

REACTIONS (1)
  - Diplopia [Not Recovered/Not Resolved]
